FAERS Safety Report 23214979 (Version 1)
Quarter: 2023Q4

REPORT INFORMATION
  Report Type: Spontaneous
  Country: US (occurrence: US)
  Receive Date: 20231122
  Receipt Date: 20231122
  Transmission Date: 20240110
  Serious: Yes (Hospitalization)
  Sender: FDA-Public Use
  Company Number: US-BRISTOL-MYERS SQUIBB COMPANY-2023-165367

PATIENT
  Age: 58 Year
  Sex: Female
  Weight: 63.04 kg

DRUGS (2)
  1. REVLIMID [Suspect]
     Active Substance: LENALIDOMIDE
     Indication: Chronic lymphocytic leukaemia
     Dosage: FREQUENCY: 3 WEEKS ON 1 WEEK OFF
     Route: 048
     Dates: start: 20231020
  2. RITUXIMAB [Suspect]
     Active Substance: RITUXIMAB
     Indication: Product used for unknown indication
     Dosage: IV THERAPY
     Route: 042

REACTIONS (2)
  - Lymphadenopathy [Unknown]
  - Off label use [Unknown]
